FAERS Safety Report 19768336 (Version 1)
Quarter: 2021Q3

REPORT INFORMATION
  Report Type: Spontaneous
  Country: US (occurrence: US)
  Receive Date: 20210827
  Receipt Date: 20210827
  Transmission Date: 20211014
  Serious: No
  Sender: FDA-Public Use
  Company Number: None

PATIENT
  Sex: Female

DRUGS (1)
  1. IBRANCE [Suspect]
     Active Substance: PALBOCICLIB
     Indication: BREAST CANCER FEMALE
     Dosage: TAKE ONE CAPSULE BY MOUTH DAILY WITH FOOD FOR 21 DAYS OF A 28?DAY CYCLE?
     Route: 048
     Dates: start: 20210210

REACTIONS (1)
  - Drug ineffective [None]
